FAERS Safety Report 6603313-8 (Version None)
Quarter: 2010Q1

REPORT INFORMATION
  Report Type: 
  Country: None (occurrence: None)
  Receive Date: 20100226
  Receipt Date: 20090112
  Transmission Date: 20100710
  Serious: No
  Sender: FDA-Public Use
  Company Number: A0763245A

PATIENT
  Sex: Female

DRUGS (1)
  1. VALTREX [Suspect]
     Dates: start: 20050101

REACTIONS (1)
  - DRUG EXPOSURE DURING PREGNANCY [None]
